FAERS Safety Report 4641354-0 (Version None)
Quarter: 2005Q2

REPORT INFORMATION
  Report Type: 
  Country: None (occurrence: None)
  Receive Date: 20050420
  Receipt Date: 20050420
  Transmission Date: 20051028
  Serious: Yes (Hospitalization)
  Sender: FDA-Public Use
  Company Number: None

PATIENT
  Age: 79 Year

DRUGS (1)
  1. METOPROLOL [Suspect]
     Dosage: 50 MG PO BID
     Route: 048

REACTIONS (1)
  - SYNCOPE [None]
